FAERS Safety Report 5012036-0 (Version None)
Quarter: 2006Q2

REPORT INFORMATION
  Report Type: 
  Country: None (occurrence: None)
  Receive Date: 20060526
  Receipt Date: 20060522
  Transmission Date: 20061013
  Serious: Yes (Other)
  Sender: FDA-Public Use
  Company Number: US-GLAXOSMITHKLINE-A0606536A

PATIENT
  Age: 21 Year
  Sex: Female

DRUGS (3)
  1. PAXIL CR [Suspect]
     Indication: DEPRESSION
     Dosage: 25MG PER DAY
     Route: 048
     Dates: start: 20060401, end: 20060513
  2. CYPROHEPTADINE HCL [Suspect]
     Dosage: 4MG THREE TIMES PER DAY
     Dates: start: 20060515, end: 20060516
  3. ADDERALL 10 [Concomitant]

REACTIONS (10)
  - ANOREXIA [None]
  - CONFUSIONAL STATE [None]
  - DIZZINESS [None]
  - FEELING COLD [None]
  - FEELING HOT [None]
  - HYPERSOMNIA [None]
  - MENTAL IMPAIRMENT [None]
  - NAUSEA [None]
  - SEROTONIN SYNDROME [None]
  - SOMNOLENCE [None]
